FAERS Safety Report 8160295-8 (Version None)
Quarter: 2012Q1

REPORT INFORMATION
  Report Type: 
  Country: None (occurrence: None)
  Receive Date: 20120223
  Receipt Date: 20120223
  Transmission Date: 20120608
  Serious: Yes (Other)
  Sender: FDA-Public Use
  Company Number: None

PATIENT
  Sex: Female
  Weight: 72.574 kg

DRUGS (2)
  1. MUCINEX [Concomitant]
  2. AVELOX [Suspect]
     Indication: HEPATITIS
     Dates: start: 20110217, end: 20120217

REACTIONS (2)
  - FATIGUE [None]
  - JAUNDICE [None]
